FAERS Safety Report 19268541 (Version 1)
Quarter: 2021Q2

REPORT INFORMATION
  Report Type: Spontaneous
  Country: FR (occurrence: FR)
  Receive Date: 20210517
  Receipt Date: 20210517
  Transmission Date: 20210717
  Serious: Yes (Hospitalization)
  Sender: FDA-Public Use
  Company Number: FR-BAUSCH-BL-2021-016147

PATIENT
  Age: 66 Year
  Sex: Female
  Weight: 51 kg

DRUGS (5)
  1. DEXAMETHASONE. [Suspect]
     Active Substance: DEXAMETHASONE
     Indication: SURGERY
     Route: 065
     Dates: start: 20210107
  2. KETOPROFENE [Suspect]
     Active Substance: KETOPROFEN
     Indication: SURGERY
     Route: 065
     Dates: start: 20210107
  3. MORPHINE [Suspect]
     Active Substance: MORPHINE
     Indication: SURGERY
     Route: 065
     Dates: start: 20210107
  4. PROPOFOL. [Suspect]
     Active Substance: PROPOFOL
     Indication: SURGERY
     Route: 042
     Dates: start: 20210107
  5. ADRENALINE [Suspect]
     Active Substance: EPINEPHRINE
     Indication: SURGERY
     Dosage: INTRAVENOUS INFUSION
     Route: 042
     Dates: start: 20210107

REACTIONS (2)
  - Posterior reversible encephalopathy syndrome [Recovered/Resolved]
  - Reversible cerebral vasoconstriction syndrome [Recovered/Resolved]

NARRATIVE: CASE EVENT DATE: 20210108
